FAERS Safety Report 11642167 (Version 2)
Quarter: 2015Q4

REPORT INFORMATION
  Report Type: Spontaneous
  Country: FR (occurrence: FR)
  Receive Date: 20151019
  Receipt Date: 20151209
  Transmission Date: 20160304
  Serious: Yes (Hospitalization)
  Sender: FDA-Public Use
  Company Number: FR-009507513-1510FRA008711

PATIENT
  Age: 59 Year
  Sex: Female
  Weight: 69 kg

DRUGS (4)
  1. EMEND [Suspect]
     Active Substance: APREPITANT
     Dosage: UNK
     Route: 048
  2. DETICENE [Suspect]
     Active Substance: DACARBAZINE
     Dosage: FORMULATION: POWDER AND SOLVENT FOR SOLUTION FOR INFUSION, 320 MG, QD
     Route: 042
     Dates: start: 20150223, end: 20150226
  3. ZOPHREN (ONDANSETRON) [Suspect]
     Active Substance: ONDANSETRON
     Dosage: UNK
     Route: 048
  4. DETICENE [Suspect]
     Active Substance: DACARBAZINE
     Dosage: FORMULATION: POWDER AND SOLVENT FOR SOLUTION FOR INFUSION, 430 MG, QD
     Route: 042
     Dates: start: 20150120, end: 20150123

REACTIONS (7)
  - Blood alkaline phosphatase increased [Recovered/Resolved]
  - Pyrexia [Recovered/Resolved]
  - Gamma-glutamyltransferase increased [Recovered/Resolved]
  - Eosinophilia [Recovered/Resolved]
  - Alanine aminotransferase increased [Recovered/Resolved]
  - Aspartate aminotransferase increased [Recovered/Resolved]
  - Hepatitis [Recovered/Resolved]

NARRATIVE: CASE EVENT DATE: 201502
